FAERS Safety Report 18665652 (Version 1)
Quarter: 2020Q4

REPORT INFORMATION
  Report Type: Spontaneous
  Country: US (occurrence: US)
  Receive Date: 20201226
  Receipt Date: 20201226
  Transmission Date: 20210114
  Serious: No
  Sender: FDA-Public Use
  Company Number: US-GLAXOSMITHKLINE-US2020251228

PATIENT
  Age: 30 Year
  Sex: Female

DRUGS (2)
  1. BLISTEX [Suspect]
     Active Substance: BENZOCAINE
     Indication: ACNE
     Dosage: UNK
  2. ABREVA [Suspect]
     Active Substance: DOCOSANOL
     Indication: ACNE
     Dosage: UNK
     Dates: start: 20201213, end: 20201217

REACTIONS (8)
  - Lip swelling [Unknown]
  - Lip erythema [Unknown]
  - Erythema [Unknown]
  - Oral discomfort [Not Recovered/Not Resolved]
  - Drug hypersensitivity [Unknown]
  - Rash [Unknown]
  - Lip pain [Unknown]
  - Product use in unapproved indication [Unknown]

NARRATIVE: CASE EVENT DATE: 20201213
